FAERS Safety Report 5810191-3 (Version None)
Quarter: 2008Q3

REPORT INFORMATION
  Report Type: 
  Country: None (occurrence: None)
  Receive Date: 20080715
  Receipt Date: 20071005
  Transmission Date: 20090109
  Serious: No
  Sender: FDA-Public Use
  Company Number: A0686364A

PATIENT
  Age: 45 Year
  Sex: Female

DRUGS (2)
  1. IMITREX [Suspect]
     Indication: MIGRAINE
     Dosage: 50MG AS REQUIRED
     Route: 048
     Dates: start: 20060101
  2. ZYRTEC-D 12 HOUR [Concomitant]

REACTIONS (1)
  - SOMNOLENCE [None]
